FAERS Safety Report 4413601-1 (Version None)
Quarter: 2004Q3

REPORT INFORMATION
  Report Type: 
  Country: None (occurrence: None)
  Receive Date: 20040802
  Receipt Date: 20040726
  Transmission Date: 20050211
  Serious: Yes (Hospitalization)
  Sender: FDA-Public Use
  Company Number: JP-MERCK-0407USA02473

PATIENT
  Age: 72 Year
  Sex: Female

DRUGS (6)
  1. PEPCID RPD [Suspect]
     Route: 048
     Dates: start: 20040519, end: 20040617
  2. PEPCID [Concomitant]
     Route: 042
     Dates: start: 20040512, end: 20040518
  3. MICAFUNGIN [Concomitant]
     Route: 042
     Dates: start: 20040530, end: 20040617
  4. DORMICUM (MIDAZOLAM) [Suspect]
     Route: 042
     Dates: start: 20040512, end: 20040618
  5. TARGOCID [Concomitant]
     Route: 042
     Dates: start: 20040530, end: 20040610
  6. VANCOMYCIN [Concomitant]
     Route: 042
     Dates: start: 20040610, end: 20040617

REACTIONS (1)
  - DRUG ERUPTION [None]
